FAERS Safety Report 5088436-X (Version None)
Quarter: 2006Q3

REPORT INFORMATION
  Report Type: 
  Country: None (occurrence: None)
  Receive Date: 20060821
  Receipt Date: 20060802
  Transmission Date: 20061208
  Serious: Yes (Other)
  Sender: FDA-Public Use
  Company Number: CHPA2006US07578

PATIENT
  Age: 34 Year
  Sex: Female
  Weight: 54.4 kg

DRUGS (1)
  1. VAGISTAT-1 [Suspect]
     Indication: VULVOVAGINAL MYCOTIC INFECTION
     Dosage: 300 MG, ONCE/SINGLE, VAGINAL
     Route: 067
     Dates: start: 20060801, end: 20060801

REACTIONS (3)
  - VAGINAL HAEMORRHAGE [None]
  - VULVAL OEDEMA [None]
  - VULVOVAGINAL DISCOMFORT [None]
